FAERS Safety Report 7761385-1 (Version None)
Quarter: 2011Q3

REPORT INFORMATION
  Report Type: 
  Country: None (occurrence: None)
  Receive Date: 20110920
  Receipt Date: 20110916
  Transmission Date: 20111222
  Serious: No
  Sender: FDA-Public Use
  Company Number: US-PFIZER INC-2011195920

PATIENT
  Sex: Female
  Weight: 82.993 kg

DRUGS (9)
  1. COENZYME Q10 [Concomitant]
     Dosage: DAILY
  2. CALCIUM [Concomitant]
     Dosage: DAILY
  3. VITAMIN B-12 [Concomitant]
     Dosage: DAILY
  4. LOVAZA [Concomitant]
     Dosage: DAILY
  5. NICOTINAMIDE [Concomitant]
     Dosage: DAILY
  6. VITAMIN D [Concomitant]
     Dosage: DAILY
  7. FLUOXETINE [Concomitant]
     Indication: DEPRESSION
     Dosage: 20 MG, DAILY
  8. CHANTIX [Suspect]
     Dosage: 1 MG, 2X/DAY
     Route: 048
     Dates: start: 20110801, end: 20110801
  9. CHANTIX [Suspect]
     Indication: SMOKING CESSATION THERAPY
     Dosage: 0.5 MG, DAILY
     Route: 048
     Dates: start: 20110801, end: 20110801

REACTIONS (1)
  - ABDOMINAL DISCOMFORT [None]
